FAERS Safety Report 5050064-X (Version None)
Quarter: 2006Q2

REPORT INFORMATION
  Report Type: 
  Country: None (occurrence: None)
  Receive Date: 20060614
  Receipt Date: 20060417
  Transmission Date: 20061013
  Serious: Yes (Other)
  Sender: FDA-Public Use
  Company Number: 444695

PATIENT
  Sex: Female

DRUGS (1)
  1. BONIVA [Suspect]

REACTIONS (4)
  - FATIGUE [None]
  - HEADACHE [None]
  - INFLUENZA [None]
  - SENSATION OF HEAVINESS [None]
